FAERS Safety Report 10173927 (Version 3)
Quarter: 2014Q2

REPORT INFORMATION
  Report Type: Report from Study
  Country: GB (occurrence: GB)
  Receive Date: 20140515
  Receipt Date: 20140521
  Transmission Date: 20141212
  Serious: Yes (Death)
  Sender: FDA-Public Use
  Company Number: GB-INCYTE CORPORATION-2014IN001187

PATIENT
  Sex: 0

DRUGS (23)
  1. INC424 [Suspect]
     Indication: ESSENTIAL THROMBOCYTHAEMIA
     Dosage: 15 MG, BID
     Route: 048
     Dates: start: 20131218
  2. CLOPIDOGREL [Concomitant]
     Dosage: UNK
  3. CLOPIDOGREL [Concomitant]
     Dosage: 75
  4. ARANESP [Concomitant]
     Indication: HAEMOGLOBIN DECREASED
     Dosage: UNK
     Dates: start: 20140319
  5. FRUSEMIDE [Concomitant]
     Dosage: UNK
  6. SERTRALINE [Concomitant]
     Indication: ANTIDEPRESSANT THERAPY
     Dosage: UNK
  7. CLONIDINE [Concomitant]
     Dosage: UNK
  8. CLONIDINE [Concomitant]
     Dosage: 50
  9. PARACETAMOL [Concomitant]
     Dosage: UNK
  10. ORAMORPH [Concomitant]
     Dosage: UNK
  11. ORAMORPH [Concomitant]
     Dosage: 10
  12. MORPHGESIC [Concomitant]
     Dosage: UNK
  13. PREGABALIN [Concomitant]
     Dosage: UNK
     Dates: start: 20140120
  14. FUROSEMIDE [Concomitant]
     Dosage: UNK
     Dates: start: 20140210
  15. SALBUTAMOL [Concomitant]
     Dosage: UNK
  16. PENICILLIN V [Concomitant]
     Dosage: UNK
  17. PENICILLIN V [Concomitant]
     Dosage: 500
  18. MEBEVERINE [Concomitant]
     Dosage: UNK
  19. MEBEVERINE [Concomitant]
     Dosage: 135
  20. LOPERAMIDE [Concomitant]
     Dosage: UNK
  21. HYOSCINE [Concomitant]
     Dosage: UNK
  22. LANSOPRAZOLE [Concomitant]
     Dosage: UNK
  23. AMITRIPTYLINE [Concomitant]
     Dosage: UNK

REACTIONS (1)
  - Intestinal infarction [Fatal]
